FAERS Safety Report 5503262-2 (Version None)
Quarter: 2007Q4

REPORT INFORMATION
  Report Type: 
  Country: None (occurrence: None)
  Receive Date: 20071026
  Receipt Date: 20071022
  Transmission Date: 20080405
  Serious: Yes (Other)
  Sender: FDA-Public Use
  Company Number: US-RB-007770-07

PATIENT
  Sex: Female
  Weight: 73.35 kg

DRUGS (5)
  1. SUBOXONE [Suspect]
     Route: 060
     Dates: start: 20070807, end: 20070807
  2. SUBOXONE [Suspect]
     Route: 060
     Dates: start: 20070808, end: 20070812
  3. SUBOXONE [Suspect]
     Route: 060
     Dates: start: 20070813, end: 20070820
  4. SUBUTEX [Suspect]
     Route: 060
     Dates: start: 20070821
  5. PRENATAL VITAMINS [Concomitant]
     Indication: PREGNANCY
     Dosage: UNKNOWN DOSE
     Route: 048
     Dates: start: 20070820

REACTIONS (2)
  - ABORTION SPONTANEOUS [None]
  - DRUG EXPOSURE DURING PREGNANCY [None]
